FAERS Safety Report 5263990-3 (Version None)
Quarter: 2007Q1

REPORT INFORMATION
  Report Type: 
  Country: None (occurrence: None)
  Receive Date: 20061213
  Receipt Date: 20051109
  Transmission Date: 20070707
  Serious: Yes (Other)
  Sender: FDA-Public Use
  Company Number: 2005UW17071

PATIENT
  Age: 63 Year
  Sex: Female

DRUGS (7)
  1. IRESSA [Suspect]
     Indication: LUNG NEOPLASM MALIGNANT
  2. VITAMIN CAP [Concomitant]
  3. CALCIUM [Concomitant]
  4. GLUCOSAMINE [Concomitant]
  5. VITAMIN E [Concomitant]
  6. ASCORBIC ACID [Concomitant]
  7. ADVIL [Concomitant]

REACTIONS (4)
  - ARTHRITIS [None]
  - BLISTER [None]
  - EPISTAXIS [None]
  - SKIN EXFOLIATION [None]
